FAERS Safety Report 19003738 (Version 2)
Quarter: 2021Q2

REPORT INFORMATION
  Report Type: Spontaneous
  Country: JP (occurrence: JP)
  Receive Date: 20210312
  Receipt Date: 20210427
  Transmission Date: 20210717
  Serious: Yes (Hospitalization, Other)
  Sender: FDA-Public Use
  Company Number: JP-PFIZER INC-2021238142

PATIENT
  Age: 55 Year
  Sex: Male

DRUGS (4)
  1. LEVOLEUCOVORIN CALCIUM. [Suspect]
     Active Substance: LEVOLEUCOVORIN CALCIUM
     Dosage: UNK
  2. 5 FU [Suspect]
     Active Substance: FLUOROURACIL
     Dosage: UNK
  3. OXALIPLATIN. [Suspect]
     Active Substance: OXALIPLATIN
     Dosage: UNK
  4. BEVACIZUMAB PFIZER [Suspect]
     Active Substance: BEVACIZUMAB
     Indication: COLON CANCER
     Dosage: UNK
     Route: 042
     Dates: start: 20201001, end: 20210114

REACTIONS (1)
  - Pneumonia [Recovering/Resolving]

NARRATIVE: CASE EVENT DATE: 202101
